FAERS Safety Report 25844981 (Version 1)
Quarter: 2025Q3

REPORT INFORMATION
  Report Type: Spontaneous
  Country: EU (occurrence: EU)
  Receive Date: 20250925
  Receipt Date: 20250925
  Transmission Date: 20251020
  Serious: Yes (Hospitalization)
  Sender: TAKEDA
  Company Number: EU-TAKEDA-2025TUS058348

PATIENT
  Age: 6 Week
  Sex: Male

DRUGS (1)
  1. LIVTENCITY [Interacting]
     Active Substance: MARIBAVIR
     Indication: Cytomegalovirus infection

REACTIONS (8)
  - Weight decreased [Recovered/Resolved]
  - Vomiting [Recovered/Resolved]
  - Diarrhoea [Recovered/Resolved]
  - Faeces discoloured [Unknown]
  - Multimorbidity [Unknown]
  - Liver function test increased [Unknown]
  - Drug interaction [Unknown]
  - Off label use [Unknown]
